FAERS Safety Report 25062356 (Version 1)
Quarter: 2025Q1

REPORT INFORMATION
  Report Type: Report from Study
  Country: IN (occurrence: IN)
  Receive Date: 20250311
  Receipt Date: 20250311
  Transmission Date: 20250409
  Serious: Yes (Other)
  Sender: ROCHE
  Company Number: IN-ROCHE-10000221235

PATIENT
  Age: 64 Year
  Sex: Male
  Weight: 71.8 kg

DRUGS (1)
  1. TECENTRIQ [Suspect]
     Active Substance: ATEZOLIZUMAB
     Indication: Non-small cell lung cancer
     Route: 042
     Dates: start: 20240304

REACTIONS (3)
  - Disease progression [Unknown]
  - Hypertension [Unknown]
  - Haemoglobin decreased [Unknown]
